FAERS Safety Report 6121393-3 (Version None)
Quarter: 2009Q1

REPORT INFORMATION
  Report Type: 
  Country: None (occurrence: None)
  Receive Date: 20090313
  Receipt Date: 20090313
  Transmission Date: 20090719
  Serious: Yes (Hospitalization)
  Sender: FDA-Public Use
  Company Number: None

PATIENT
  Age: 9 Year
  Sex: Female
  Weight: 32.659 kg

DRUGS (1)
  1. VYVANSE [Suspect]
     Indication: ATTENTION DEFICIT/HYPERACTIVITY DISORDER
     Dosage: 30 MG DAILY PO SINGLE DOSE
     Route: 048
     Dates: start: 20090312, end: 20090312

REACTIONS (5)
  - AGITATION [None]
  - DELIRIUM [None]
  - HYPERTENSION [None]
  - MALAISE [None]
  - TACHYCARDIA [None]
